FAERS Safety Report 10881578 (Version 1)
Quarter: 2015Q1

REPORT INFORMATION
  Report Type: Spontaneous
  Country: US (occurrence: None)
  Receive Date: 20150225
  Receipt Date: 20150225
  Transmission Date: 20150721
  Serious: Yes (Hospitalization)
  Sender: FDA-Public Use
  Company Number: None

PATIENT
  Age: 64 Year
  Sex: Female
  Weight: 48.5 kg

DRUGS (1)
  1. CISPLATIN. [Suspect]
     Active Substance: CISPLATIN
     Dates: end: 20150203

REACTIONS (7)
  - Hyponatraemia [None]
  - Dysphagia [None]
  - Weight decreased [None]
  - Stomatitis [None]
  - Trismus [None]
  - Chest pain [None]
  - Asthenia [None]

NARRATIVE: CASE EVENT DATE: 20150218
